FAERS Safety Report 8777716 (Version 2)
Quarter: 2012Q4

REPORT INFORMATION
  Report Type: 
  Country: US (occurrence: US)
  Receive Date: 20120912
  Receipt Date: 20121016
  Transmission Date: 20130627
  Serious: No
  Sender: FDA-Public Use
  Company Number: US-ASTRAZENECA-2012SE65252

PATIENT
  Age: 53 Year
  Sex: Female

DRUGS (2)
  1. SYMBICORT [Suspect]
     Indication: CHRONIC OBSTRUCTIVE PULMONARY DISEASE
     Dosage: UNKNOWN
     Route: 055
  2. ELEVEN OTHER DRUGS [Concomitant]

REACTIONS (3)
  - Adverse event [Unknown]
  - Chronic obstructive pulmonary disease [Unknown]
  - Drug ineffective [Unknown]
